FAERS Safety Report 25771403 (Version 1)
Quarter: 2025Q3

REPORT INFORMATION
  Report Type: Spontaneous
  Country: US (occurrence: US)
  Receive Date: 20250908
  Receipt Date: 20250908
  Transmission Date: 20251020
  Serious: No
  Sender: DOMPE FARMACEUTICI
  Company Number: US-FARMAPROD-202504-1255

PATIENT
  Sex: Female

DRUGS (22)
  1. OXERVATE [Suspect]
     Active Substance: CENEGERMIN-BKBJ
     Indication: Neurotrophic keratopathy
     Route: 047
     Dates: start: 20250327
  2. REFRESH PLUS [Concomitant]
     Active Substance: CARBOXYMETHYLCELLULOSE SODIUM
  3. XDEMVY [Concomitant]
     Active Substance: LOTILANER
  4. IYUZEH [Concomitant]
     Active Substance: LATANOPROST
  5. TYRVAYA [Concomitant]
     Active Substance: VARENICLINE TARTRATE
  6. OFLOXACIN [Concomitant]
     Active Substance: OFLOXACIN
  7. SYSTANE (HYPROMELLOSE 2910 (4000 MPA.S)) [Concomitant]
     Active Substance: HYPROMELLOSE 2910 (4000 MPA.S)
  8. HAIR SKIN NAILS [Concomitant]
  9. ZINC-15 [Concomitant]
  10. MAGNESIUM [Concomitant]
     Active Substance: MAGNESIUM
  11. CALCIUM [Concomitant]
     Active Substance: CALCIUM
  12. BIOTIN [Concomitant]
     Active Substance: BIOTIN
  13. VITAMIN D3 [Concomitant]
     Active Substance: CHOLECALCIFEROL
  14. VITAMINS [Concomitant]
     Active Substance: VITAMINS
  15. LEVOTHYROXINE SODIUM [Concomitant]
     Active Substance: LEVOTHYROXINE SODIUM
  16. PRIMIDONE [Concomitant]
     Active Substance: PRIMIDONE
  17. OMEPRAZOLE [Concomitant]
     Active Substance: OMEPRAZOLE
  18. ATORVASTATIN CALCIUM [Concomitant]
     Active Substance: ATORVASTATIN CALCIUM
  19. SERTRALINE HYDROCHLORIDE [Concomitant]
     Active Substance: SERTRALINE HYDROCHLORIDE
  20. AMLODIPINE BESYLATE [Concomitant]
     Active Substance: AMLODIPINE BESYLATE
  21. TOPIRAMATE [Concomitant]
     Active Substance: TOPIRAMATE
  22. GABAPENTIN [Concomitant]
     Active Substance: GABAPENTIN

REACTIONS (3)
  - Eye pain [Unknown]
  - Eyelid pain [Unknown]
  - Photophobia [Unknown]
